FAERS Safety Report 5245511-4 (Version None)
Quarter: 2007Q1

REPORT INFORMATION
  Report Type: 
  Country: None (occurrence: None)
  Receive Date: 20070223
  Receipt Date: 20070213
  Transmission Date: 20070707
  Serious: Yes (Death, Other)
  Sender: FDA-Public Use
  Company Number: US-PFIZER INC-2006132688

PATIENT
  Sex: Female
  Weight: 61.2 kg

DRUGS (2)
  1. BEXTRA [Suspect]
     Indication: ARTHRITIS
     Dates: start: 20040501, end: 20041101
  2. BEXTRA [Suspect]
     Indication: ARTHRALGIA

REACTIONS (8)
  - CARDIAC FAILURE CONGESTIVE [None]
  - CEREBRAL ISCHAEMIA [None]
  - COGNITIVE DISORDER [None]
  - CORONARY ARTERY DISEASE [None]
  - DYSPHAGIA [None]
  - SPEECH DISORDER [None]
  - SUICIDAL IDEATION [None]
  - VENTRICULAR FIBRILLATION [None]
